FAERS Safety Report 18018422 (Version 2)
Quarter: 2020Q3

REPORT INFORMATION
  Report Type: Spontaneous
  Country: US (occurrence: US)
  Receive Date: 20200714
  Receipt Date: 20200916
  Transmission Date: 20201103
  Serious: Yes (Other)
  Sender: FDA-Public Use
  Company Number: US-BAYER-2020-134353

PATIENT
  Age: 39 Year
  Sex: Female
  Weight: 81.63 kg

DRUGS (1)
  1. MIRENA [Suspect]
     Active Substance: LEVONORGESTREL
     Indication: CONTRACEPTION
     Dosage: 20 ?G PER DAY, CONTINUOUSLY
     Route: 015
     Dates: start: 20150414, end: 20200601

REACTIONS (5)
  - Complication of device removal [None]
  - Device difficult to use [None]
  - Device breakage [None]
  - Embedded device [Recovering/Resolving]
  - Device use issue [None]

NARRATIVE: CASE EVENT DATE: 20200601
